FAERS Safety Report 24037223 (Version 1)
Quarter: 2024Q3

REPORT INFORMATION
  Report Type: Report from Study
  Country: US (occurrence: US)
  Receive Date: 20240701
  Receipt Date: 20240701
  Transmission Date: 20241017
  Serious: Yes (Other)
  Sender: JOHNSON AND JOHNSON
  Company Number: US-JNJFOC-20240662361

PATIENT

DRUGS (1)
  1. CONCERTA [Suspect]
     Active Substance: METHYLPHENIDATE HYDROCHLORIDE
     Indication: Apathy
     Route: 065

REACTIONS (10)
  - Atrial fibrillation [Unknown]
  - Hyperlipidaemia [Unknown]
  - Hypercholesterolaemia [Unknown]
  - Coronary artery disease [Unknown]
  - Fall [Unknown]
  - Off label use [Unknown]
  - Hypertension [Unknown]
  - Weight decreased [Unknown]
  - Insomnia [Unknown]
  - Heart rate increased [Unknown]
